FAERS Safety Report 7737881-X (Version None)
Quarter: 2011Q3

REPORT INFORMATION
  Report Type: 
  Country: None (occurrence: None)
  Receive Date: 20110908
  Receipt Date: 20110902
  Transmission Date: 20111222
  Serious: Yes (Hospitalization)
  Sender: FDA-Public Use
  Company Number: PHEH2011US03288

PATIENT
  Sex: Female

DRUGS (2)
  1. VOLTAREN [Suspect]
     Dosage: ONCE DAILY
     Route: 048
     Dates: start: 19800101, end: 20101001
  2. DICLOFENAC SODIUM [Suspect]
     Dosage: UNK UKN, UNK
     Dates: start: 19800101, end: 20101001

REACTIONS (3)
  - LOSS OF CONSCIOUSNESS [None]
  - GASTRIC PERFORATION [None]
  - FEELING HOT [None]
